FAERS Safety Report 17437688 (Version 4)
Quarter: 2020Q4

REPORT INFORMATION
  Report Type: Report from Study
  Country: ES (occurrence: ES)
  Receive Date: 20200219
  Receipt Date: 20201203
  Transmission Date: 20210113
  Serious: Yes (Death, Life-Threatening, Hospitalization, Other)
  Sender: FDA-Public Use
  Company Number: ES-GILEAD-2019-0419190

PATIENT
  Age: 23 Year
  Sex: Male

DRUGS (15)
  1. AXICABTAGENE CILOLEUCEL [Suspect]
     Active Substance: AXICABTAGENE CILOLEUCEL
     Indication: NON-HODGKIN^S LYMPHOMA STAGE IV
     Dosage: 68 ML, ONCE
     Route: 042
     Dates: start: 20190708, end: 20190708
  2. ALOPURINOL [Concomitant]
     Active Substance: ALLOPURINOL
  3. MAGNESIUM SULFATE. [Concomitant]
     Active Substance: MAGNESIUM SULFATE
  4. ENOXAPARINA [Concomitant]
     Active Substance: ENOXAPARIN
  5. PARACETAMOL [Concomitant]
     Active Substance: ACETAMINOPHEN
  6. URSODESOXYCHOLIC ACID [Concomitant]
     Active Substance: URSODIOL
  7. POTASSIUM CHLORIDE. [Concomitant]
     Active Substance: POTASSIUM CHLORIDE
  8. FOLIC ACID. [Concomitant]
     Active Substance: FOLIC ACID
  9. ABSTRAL [Concomitant]
     Active Substance: FENTANYL CITRATE
  10. METOCLOPRAMIDA [METOCLOPRAMIDE] [Concomitant]
     Active Substance: METOCLOPRAMIDE
  11. ACICLOVIR [Concomitant]
     Active Substance: ACYCLOVIR
  12. SODIO CLORURO [Concomitant]
     Active Substance: SODIUM CHLORIDE
  13. FLUCONAZOL [Concomitant]
     Active Substance: FLUCONAZOLE
  14. OMEPRAZOL [OMEPRAZOLE] [Concomitant]
     Active Substance: OMEPRAZOLE
  15. COTRIMOXAZOL [Concomitant]
     Active Substance: SULFAMETHOXAZOLE\TRIMETHOPRIM

REACTIONS (3)
  - Cytokine release syndrome [Recovered/Resolved]
  - Non-Hodgkin^s lymphoma [Fatal]
  - Neurotoxicity [Recovered/Resolved]

NARRATIVE: CASE EVENT DATE: 20190711
